FAERS Safety Report 12737181 (Version 1)
Quarter: 2016Q3

REPORT INFORMATION
  Report Type: Spontaneous
  Country: US (occurrence: US)
  Receive Date: 20160913
  Receipt Date: 20160913
  Transmission Date: 20161109
  Serious: No
  Sender: FDA-Public Use
  Company Number: US-ASTRAZENECA-2016SE92209

PATIENT
  Sex: Male
  Weight: 106.6 kg

DRUGS (1)
  1. PULMICORT FLEXHALER [Suspect]
     Active Substance: BUDESONIDE
     Indication: ASTHMA
     Dosage: UNKNOWN
     Route: 055
     Dates: start: 20160818

REACTIONS (3)
  - Feeling abnormal [Unknown]
  - Nervousness [Unknown]
  - Product use issue [Unknown]

NARRATIVE: CASE EVENT DATE: 20160818
